FAERS Safety Report 10064093 (Version 1)
Quarter: 2014Q2

REPORT INFORMATION
  Report Type: Spontaneous
  Country: US (occurrence: US)
  Receive Date: 20140408
  Receipt Date: 20140408
  Transmission Date: 20141212
  Serious: Yes (Hospitalization)
  Sender: FDA-Public Use
  Company Number: US-ASTRAZENECA-2014SE23164

PATIENT
  Age: 625 Month
  Sex: Female
  Weight: 108 kg

DRUGS (5)
  1. SYMBICORT [Suspect]
     Indication: ASTHMA
     Dosage: 160/4.5 MCG, 2 PUFFS BID
     Route: 055
     Dates: end: 201403
  2. SYMBICORT [Suspect]
     Indication: ASTHMA
     Dosage: 160/4.5 MCG, EXTRA DOSES IF NEEDED
     Route: 055
     Dates: end: 201403
  3. PROAIR [Concomitant]
     Indication: ASTHMA
     Dosage: 2 OR 4 PUFFS BID
     Route: 055
  4. ALBUTEROL [Concomitant]
     Indication: ASTHMA
     Dosage: 2 OR 4 PUFFS BID
     Route: 055
  5. INJECTABLE STEROIDS [Concomitant]
     Indication: RESPIRATORY TRACT CONGESTION

REACTIONS (3)
  - Asthma [Recovered/Resolved]
  - Drug dose omission [Not Recovered/Not Resolved]
  - Intentional product misuse [Unknown]
